FAERS Safety Report 21962781 (Version 1)
Quarter: 2023Q1

REPORT INFORMATION
  Report Type: Spontaneous
  Country: US (occurrence: US)
  Receive Date: 20230207
  Receipt Date: 20230207
  Transmission Date: 20230418
  Serious: No
  Sender: FDA-Public Use
  Company Number: US-PFIZER INC-202200230222

PATIENT
  Age: 22 Year

DRUGS (1)
  1. ZARONTIN [Suspect]
     Active Substance: ETHOSUXIMIDE
     Dosage: 500 MG, 2X/DAY (TAKE 2 CAPSULES BY MOUTH TWO TIMES DAILY)
     Route: 048

REACTIONS (1)
  - Anxiety [Unknown]
